FAERS Safety Report 14666424 (Version 3)
Quarter: 2021Q2

REPORT INFORMATION
  Report Type: Spontaneous
  Country: US (occurrence: US)
  Receive Date: 20180321
  Receipt Date: 20210621
  Transmission Date: 20210716
  Serious: Yes (Hospitalization, Other)
  Sender: FDA-Public Use
  Company Number: US-VIFOR (INTERNATIONAL) INC.-VIT-2018-02655

PATIENT
  Age: 62 Year
  Sex: Male

DRUGS (17)
  1. NEPHROCAPS [Concomitant]
     Active Substance: ASCORBIC ACID\BIOTIN\CYANOCOBALAMIN\FOLIC ACID\NIACIN\PANTOTHENIC ACID\PYRIDOXINE\RIBOFLAVIN\THIAMINE
  2. SODIUM BICARBONATE. [Concomitant]
     Active Substance: SODIUM BICARBONATE
  3. FOSRENOL [Concomitant]
     Active Substance: LANTHANUM CARBONATE
  4. HUMALOG [Concomitant]
     Active Substance: INSULIN LISPRO
  5. PROCHLORPERAZINE MALEATE. [Concomitant]
     Active Substance: PROCHLORPERAZINE MALEATE
  6. VELTASSA [Suspect]
     Active Substance: PATIROMER
     Route: 048
     Dates: start: 20160913
  7. LASIX [Concomitant]
     Active Substance: FUROSEMIDE
  8. LEVEMIR [Concomitant]
     Active Substance: INSULIN DETEMIR
  9. NEURONTIN [Concomitant]
     Active Substance: GABAPENTIN
  10. SENSIPAR [Concomitant]
     Active Substance: CINACALCET HYDROCHLORIDE
  11. VELTASSA [Suspect]
     Active Substance: PATIROMER
     Indication: HYPERKALAEMIA
     Route: 048
     Dates: start: 20160913
  12. COLACE [Concomitant]
     Active Substance: DOCUSATE SODIUM
  13. CYCLOBENZAPRINE HCL [Concomitant]
     Active Substance: CYCLOBENZAPRINE HYDROCHLORIDE
  14. OXYCOCET [Concomitant]
     Active Substance: ACETAMINOPHEN\OXYCODONE HYDROCHLORIDE
  15. LIPITOR [Concomitant]
     Active Substance: ATORVASTATIN CALCIUM
  16. AURYXIA [Concomitant]
     Active Substance: TETRAFERRIC TRICITRATE DECAHYDRATE
  17. PRIMIDONE. [Concomitant]
     Active Substance: PRIMIDONE

REACTIONS (6)
  - Leg amputation [Unknown]
  - Off label use [Unknown]
  - Diarrhoea [Unknown]
  - Postoperative wound infection [Unknown]
  - Rehabilitation therapy [Unknown]
  - Dehydration [Unknown]

NARRATIVE: CASE EVENT DATE: 20160913
